FAERS Safety Report 13774766 (Version 1)
Quarter: 2017Q3

REPORT INFORMATION
  Report Type: Spontaneous
  Country: JP (occurrence: JP)
  Receive Date: 20170720
  Receipt Date: 20170720
  Transmission Date: 20171127
  Serious: Yes (Other)
  Sender: FDA-Public Use
  Company Number: JP-TEVA-787980ROM

PATIENT
  Age: 74 Year
  Sex: Female

DRUGS (1)
  1. HEPARIN [Suspect]
     Active Substance: HEPARIN SODIUM
     Route: 065

REACTIONS (3)
  - Cardiac vein perforation [Recovered/Resolved]
  - Syncope [Unknown]
  - Cardiac tamponade [Recovered/Resolved]
